FAERS Safety Report 8194201-7 (Version None)
Quarter: 2012Q1

REPORT INFORMATION
  Report Type: 
  Country: None (occurrence: None)
  Receive Date: 20120308
  Receipt Date: 20120305
  Transmission Date: 20120608
  Serious: Yes (Other)
  Sender: FDA-Public Use
  Company Number: DE-AMGEN-DEUSP2012014081

PATIENT
  Age: 71 Year
  Sex: Female

DRUGS (1)
  1. PROLIA [Suspect]
     Indication: PRODUCT USED FOR UNKNOWN INDICATION
     Dosage: UNK UNK, Q4WK
     Dates: start: 20120201

REACTIONS (5)
  - PERIODONTITIS [None]
  - GINGIVAL DISCOLOURATION [None]
  - BACK PAIN [None]
  - COUGH [None]
  - SINUSITIS [None]
